FAERS Safety Report 11316710 (Version 1)
Quarter: 2015Q3

REPORT INFORMATION
  Report Type: Spontaneous
  Country: US (occurrence: US)
  Receive Date: 20150728
  Receipt Date: 20150728
  Transmission Date: 20151125
  Serious: No
  Sender: FDA-Public Use
  Company Number: US-PFIZER INC-2015241997

PATIENT
  Age: 85 Year
  Sex: Female
  Weight: 82 kg

DRUGS (1)
  1. IBRANCE [Suspect]
     Active Substance: PALBOCICLIB
     Indication: BREAST CANCER FEMALE
     Dosage: 125 MG, CYCLIC (1 CAP DAILY D1-D21 Q28 D)
     Route: 048
     Dates: start: 20150609

REACTIONS (6)
  - Hunger [Unknown]
  - Bladder disorder [Not Recovered/Not Resolved]
  - Food intolerance [Unknown]
  - Constipation [Unknown]
  - Faecal incontinence [Unknown]
  - Weight increased [Unknown]

NARRATIVE: CASE EVENT DATE: 20150717
